FAERS Safety Report 18634318 (Version 1)
Quarter: 2020Q4

REPORT INFORMATION
  Report Type: Spontaneous
  Country: FR (occurrence: FR)
  Receive Date: 20201218
  Receipt Date: 20201218
  Transmission Date: 20210114
  Serious: Yes (Other)
  Sender: FDA-Public Use
  Company Number: FR-FRESENIUS KABI-FK202013366

PATIENT
  Age: 69 Year
  Sex: Male
  Weight: 54 kg

DRUGS (14)
  1. LACTATED RINGERS SOLUTION [Suspect]
     Active Substance: CALCIUM CHLORIDE\POTASSIUM CHLORIDE\SODIUM CHLORIDE\SODIUM LACTATE
     Indication: HYPOVOLAEMIA
     Dosage: 4.5 LITER TOTAL
     Route: 065
  2. LIDOCAINE. [Concomitant]
     Active Substance: LIDOCAINE
     Indication: MAINTENANCE OF ANAESTHESIA
     Route: 041
  3. KETAMINE [Concomitant]
     Active Substance: KETAMINE
     Indication: INDUCTION OF ANAESTHESIA
     Dosage: 0.3 MG/KG/HOUR ACTUAL BODY WEIGHT (INDUCTION)
     Route: 040
  4. SODIUM CHLORIDE (MANUFACTURER UNKNOWN) [Suspect]
     Active Substance: SODIUM CHLORIDE
     Indication: HYPOVOLAEMIA
     Dosage: 500 ML TOTAL
     Route: 065
  5. HES (MANUFACTURER UNKNOWN) [Suspect]
     Active Substance: HETASTARCH
     Indication: HYPOVOLAEMIA
     Dosage: 500 ML TOTAL
     Route: 065
  6. KETAMINE [Concomitant]
     Active Substance: KETAMINE
     Indication: MAINTENANCE OF ANAESTHESIA
     Dosage: 0.15 MG/KG/HOUR IDEAL BODY WEIGHT (MAINTENACE)
     Route: 041
  7. PROPOFOL. [Concomitant]
     Active Substance: PROPOFOL
     Indication: MAINTENANCE OF ANAESTHESIA
  8. REMIFENTANIL [Concomitant]
     Active Substance: REMIFENTANIL
     Indication: INDUCTION OF ANAESTHESIA
     Route: 042
  9. ATRACURIUM BESILATE [Concomitant]
     Active Substance: ATRACURIUM BESYLATE
  10. PHENYLEPHRINE [Concomitant]
     Active Substance: PHENYLEPHRINE HYDROCHLORIDE
  11. PROPOFOL. [Concomitant]
     Active Substance: PROPOFOL
     Indication: INDUCTION OF ANAESTHESIA
     Dosage: UNK
     Route: 041
  12. EPHEDRINE. [Concomitant]
     Active Substance: EPHEDRINE
  13. LIDOCAINE. [Concomitant]
     Active Substance: LIDOCAINE
     Indication: INDUCTION OF ANAESTHESIA
     Route: 040
  14. REMIFENTANIL [Concomitant]
     Active Substance: REMIFENTANIL
     Indication: MAINTENANCE OF ANAESTHESIA

REACTIONS (2)
  - Condition aggravated [Recovered/Resolved]
  - Hypoalbuminaemia [Recovered/Resolved]
